FAERS Safety Report 5487270-6 (Version None)
Quarter: 2007Q4

REPORT INFORMATION
  Report Type: 
  Country: None (occurrence: None)
  Receive Date: 20071015
  Receipt Date: 20070928
  Transmission Date: 20080405
  Serious: Yes (Hospitalization)
  Sender: FDA-Public Use
  Company Number: 2007001599

PATIENT
  Age: 42 Year
  Sex: Male
  Weight: 90.7 kg

DRUGS (9)
  1. ERLOTINIB (TABLET) [Suspect]
     Indication: COLON CANCER METASTATIC
     Dosage: 150 MG (Q3W), ORAL
     Route: 048
     Dates: start: 20060912
  2. TOPOTECAN (TOPOTECAN) [Suspect]
     Indication: COLON CANCER METASTATIC
     Dosage: 2.1MG (Q3W), INTRAVENOUS
     Route: 042
  3. NIFEDIPINE [Concomitant]
  4. METHADONE HCL [Concomitant]
  5. HYDROMORPHONE HCL [Concomitant]
  6. DURAGESIC-100 [Concomitant]
  7. DILAUDID [Concomitant]
  8. AVINZA [Concomitant]
  9. NIFEDIPINE [Concomitant]

REACTIONS (4)
  - DISEASE PROGRESSION [None]
  - HAEMATURIA [None]
  - PAIN [None]
  - STAPHYLOCOCCAL INFECTION [None]
